FAERS Safety Report 18476238 (Version 91)
Quarter: 2022Q4

REPORT INFORMATION
  Report Type: Report from Study
  Country: CO (occurrence: CO)
  Receive Date: 20201106
  Receipt Date: 20221228
  Transmission Date: 20230113
  Serious: Yes (Life-Threatening, Other)
  Sender: FDA-Public Use
  Company Number: CO-TAKEDA-2020TUS046071

PATIENT
  Age: 43 Year
  Sex: Female
  Weight: 79 kg

DRUGS (15)
  1. ICATIBANT [Suspect]
     Active Substance: ICATIBANT ACETATE
     Indication: Hereditary angioedema
     Dosage: UNK
     Route: 058
  2. ICATIBANT [Suspect]
     Active Substance: ICATIBANT ACETATE
     Indication: Hereditary angioedema
     Dosage: UNK
     Route: 058
  3. ICATIBANT [Suspect]
     Active Substance: ICATIBANT ACETATE
     Dosage: 1 DOSAGE FORM, Q6HR
     Route: 058
  4. ICATIBANT [Suspect]
     Active Substance: ICATIBANT ACETATE
     Dosage: 1 DOSAGE FORM, Q6HR
     Route: 058
  5. ICATIBANT [Suspect]
     Active Substance: ICATIBANT ACETATE
     Dosage: UNK, Q8HR
     Route: 058
  6. ICATIBANT [Suspect]
     Active Substance: ICATIBANT ACETATE
     Dosage: UNK, Q8HR
     Route: 058
  7. ICATIBANT [Suspect]
     Active Substance: ICATIBANT ACETATE
     Dosage: UNK, QD
     Route: 058
  8. ICATIBANT [Suspect]
     Active Substance: ICATIBANT ACETATE
     Dosage: UNK, QD
     Route: 058
  9. ICATIBANT [Suspect]
     Active Substance: ICATIBANT ACETATE
     Dosage: 30 MILLIGRAM, Q8HR
     Route: 058
  10. ICATIBANT [Suspect]
     Active Substance: ICATIBANT ACETATE
     Dosage: 30 MILLIGRAM, Q8HR
     Route: 058
  11. TAKHZYRO [Suspect]
     Active Substance: LANADELUMAB-FLYO
     Indication: Hereditary angioedema
     Dosage: 300 MILLIGRAM
     Route: 058
  12. TAKHZYRO [Suspect]
     Active Substance: LANADELUMAB-FLYO
     Dosage: 300 MILLIGRAM, 2/WEEK
     Route: 058
  13. TAKHZYRO [Suspect]
     Active Substance: LANADELUMAB-FLYO
     Dosage: 300 MILLIGRAM, 2/MONTH
     Route: 058
  14. COVID-19 VACCINE NOS [Suspect]
     Active Substance: COVID-19 VACCINE NOS
     Indication: COVID-19 immunisation
     Dosage: UNK
     Route: 065
     Dates: start: 20210708
  15. TRANEXAMIC ACID [Concomitant]
     Active Substance: TRANEXAMIC ACID
     Dosage: UNK
     Route: 065

REACTIONS (42)
  - Suicidal ideation [Not Recovered/Not Resolved]
  - Hereditary angioedema [Recovered/Resolved]
  - Menstruation delayed [Not Recovered/Not Resolved]
  - Illness [Not Recovered/Not Resolved]
  - Feeling abnormal [Recovered/Resolved]
  - Crying [Not Recovered/Not Resolved]
  - Feeling of despair [Not Recovered/Not Resolved]
  - Feeling cold [Not Recovered/Not Resolved]
  - Depressed mood [Not Recovered/Not Resolved]
  - Discouragement [Recovered/Resolved]
  - Gait disturbance [Recovered/Resolved]
  - Depression [Not Recovered/Not Resolved]
  - Hyperhidrosis [Recovering/Resolving]
  - Pallor [Recovering/Resolving]
  - Asthma [Recovered/Resolved]
  - Speech disorder [Recovering/Resolving]
  - Mobility decreased [Recovered/Resolved]
  - Grip strength decreased [Not Recovered/Not Resolved]
  - Pain [Not Recovered/Not Resolved]
  - Paraesthesia [Unknown]
  - Fear [Unknown]
  - Ligament sprain [Recovered/Resolved]
  - Anxiety [Not Recovered/Not Resolved]
  - Early satiety [Unknown]
  - COVID-19 immunisation [Unknown]
  - Stress [Not Recovered/Not Resolved]
  - Condition aggravated [Not Recovered/Not Resolved]
  - Weight decreased [Unknown]
  - Asthenia [Not Recovered/Not Resolved]
  - Dyspnoea [Not Recovered/Not Resolved]
  - Nasopharyngitis [Recovering/Resolving]
  - Emotional distress [Recovered/Resolved]
  - Dizziness [Not Recovered/Not Resolved]
  - Fatigue [Not Recovered/Not Resolved]
  - Dysphonia [Not Recovered/Not Resolved]
  - Malaise [Not Recovered/Not Resolved]
  - Influenza [Not Recovered/Not Resolved]
  - Limb discomfort [Recovered/Resolved]
  - Headache [Recovered/Resolved]
  - Nausea [Recovered/Resolved]
  - Product prescribing issue [Unknown]
  - Product availability issue [Not Recovered/Not Resolved]

NARRATIVE: CASE EVENT DATE: 20201101
